FAERS Safety Report 10017373 (Version 1)
Quarter: 2014Q1

REPORT INFORMATION
  Report Type: Spontaneous
  Country: US (occurrence: None)
  Receive Date: 20140313
  Receipt Date: 20140313
  Transmission Date: 20141002
  Serious: Yes (Other)
  Sender: FDA-Public Use
  Company Number: None

PATIENT
  Age: 41 Year
  Sex: Female
  Weight: 70.31 kg

DRUGS (1)
  1. MIRVASO [Suspect]
     Indication: ROSACEA
     Dosage: ONCE DAILY APPLIED TO A SURFACE, USALLY THE SKIN
     Dates: start: 20140310, end: 20140312

REACTIONS (5)
  - Burning sensation [None]
  - Flushing [None]
  - Erythema [None]
  - Flushing [None]
  - Pain [None]
